FAERS Safety Report 4982971-8 (Version None)
Quarter: 2006Q2

REPORT INFORMATION
  Report Type: 
  Country: None (occurrence: None)
  Receive Date: 20060426
  Receipt Date: 20060417
  Transmission Date: 20061013
  Serious: Yes (Hospitalization)
  Sender: FDA-Public Use
  Company Number: US-JNJFOC-20060403705

PATIENT
  Sex: Female
  Weight: 78.47 kg

DRUGS (11)
  1. REMICADE [Suspect]
     Indication: RHEUMATOID ARTHRITIS
     Route: 042
  2. LIPITOR [Concomitant]
  3. WATER PILL [Concomitant]
  4. BENECAR [Concomitant]
  5. SULFADIAZINE [Concomitant]
  6. BUMEX [Concomitant]
     Indication: DIURETIC THERAPY
  7. ACTENOL [Concomitant]
  8. POTASSIUM [Concomitant]
  9. MAGNESIUM [Concomitant]
  10. ADVAIR DISKUS 100/50 [Concomitant]
  11. ADVAIR DISKUS 100/50 [Concomitant]

REACTIONS (3)
  - CORONARY ARTERY SURGERY [None]
  - PARAESTHESIA [None]
  - SKIN DISORDER [None]
